FAERS Safety Report 7690224-2 (Version None)
Quarter: 2011Q3

REPORT INFORMATION
  Report Type: 
  Country: None (occurrence: None)
  Receive Date: 20110812
  Receipt Date: 20110727
  Transmission Date: 20111222
  Serious: Yes (Hospitalization)
  Sender: FDA-Public Use
  Company Number: ES-DEXPHARM-20111103

PATIENT
  Sex: Male

DRUGS (4)
  1. MAGNESIUM [Concomitant]
  2. CALCIUM CARBONATE [Concomitant]
  3. OMEPRAZOLE [Suspect]
     Dosage: 20 MG MILLGRAM(S) SEP. DOSAGES / INTERVAL: 1 IN 1 DAY
     Dates: start: 20020101
  4. CALCITRIOL [Concomitant]

REACTIONS (5)
  - HYPOCALCAEMIA [None]
  - SUPRAVENTRICULAR TACHYCARDIA [None]
  - DIARRHOEA [None]
  - LATENT TETANY [None]
  - HYPOMAGNESAEMIA [None]
